FAERS Safety Report 24975674 (Version 2)
Quarter: 2025Q2

REPORT INFORMATION
  Report Type: Spontaneous
  Country: US (occurrence: US)
  Receive Date: 20250217
  Receipt Date: 20250415
  Transmission Date: 20250717
  Serious: No
  Sender: ALEXION PHARMACEUTICALS
  Company Number: US-AstraZeneca-CH-00806858A

PATIENT

DRUGS (1)
  1. BYDUREON BCISE [Suspect]
     Active Substance: EXENATIDE
     Route: 065

REACTIONS (6)
  - Injection site rash [Unknown]
  - Pruritus [Recovered/Resolved]
  - Injection site mass [Unknown]
  - Incorrect dose administered [Unknown]
  - Product administration interrupted [Unknown]
  - Injection site haemorrhage [Unknown]
